FAERS Safety Report 18386023 (Version 1)
Quarter: 2020Q4

REPORT INFORMATION
  Report Type: Report from Study
  Country: CN (occurrence: CN)
  Receive Date: 20201015
  Receipt Date: 20201015
  Transmission Date: 20210114
  Serious: Yes (Other)
  Sender: FDA-Public Use
  Company Number: CN-SUN PHARMACEUTICAL INDUSTRIES LTD-2020R1-264139

PATIENT
  Sex: Female

DRUGS (4)
  1. AZITHROMYCINE [Suspect]
     Active Substance: AZITHROMYCIN
     Indication: LISTERIOSIS
     Dosage: UNK
     Route: 065
  2. CEFTRIAXONE. [Suspect]
     Active Substance: CEFTRIAXONE
     Indication: LISTERIOSIS
     Dosage: UNK (2D)
     Route: 065
  3. CLINDAMYCIN. [Suspect]
     Active Substance: CLINDAMYCIN
     Indication: LISTERIOSIS
     Dosage: UNK
     Route: 065
  4. PENICILLIN-G [Suspect]
     Active Substance: PENICILLIN G
     Indication: LISTERIOSIS
     Dosage: UNK (7D)
     Route: 065

REACTIONS (4)
  - Premature delivery [Unknown]
  - Postpartum haemorrhage [Recovered/Resolved]
  - Exposure during pregnancy [Unknown]
  - Meconium in amniotic fluid [Recovered/Resolved]
